FAERS Safety Report 15420404 (Version 2)
Quarter: 2018Q4

REPORT INFORMATION
  Report Type: Report from Study
  Country: US (occurrence: US)
  Receive Date: 20180924
  Receipt Date: 20181002
  Transmission Date: 20190204
  Serious: No
  Sender: FDA-Public Use
  Company Number: US-MITSUBISHI TANABE PHARMA CORPORATION-MPE2018-0022506

PATIENT
  Age: 69 Year
  Sex: Female

DRUGS (1)
  1. RADICAVA [Suspect]
     Active Substance: EDARAVONE
     Indication: AMYOTROPHIC LATERAL SCLEROSIS
     Route: 042
     Dates: start: 20171019, end: 20180808

REACTIONS (4)
  - Aphasia [Unknown]
  - Hospice care [Unknown]
  - Mobility decreased [Unknown]
  - Device related infection [Unknown]

NARRATIVE: CASE EVENT DATE: 20180905
